FAERS Safety Report 20486707 (Version 1)
Quarter: 2022Q1

REPORT INFORMATION
  Report Type: Spontaneous
  Country: US (occurrence: None)
  Receive Date: 20220217
  Receipt Date: 20220217
  Transmission Date: 20220423
  Serious: Yes (Hospitalization)
  Sender: FDA-Public Use
  Company Number: None

PATIENT
  Age: 17 Year
  Sex: Female
  Weight: 121.4 kg

DRUGS (6)
  1. CYTARABINE [Suspect]
     Active Substance: CYTARABINE
     Dates: end: 20220118
  2. DAUNORUBICIN [Suspect]
     Active Substance: DAUNORUBICIN
     Dates: end: 20220202
  3. METHOTREXATE [Suspect]
     Active Substance: METHOTREXATE
     Dates: end: 20220126
  4. ONCASPAR [Suspect]
     Active Substance: PEGASPARGASE
     Dosage: OTHER QUANTITY : 3750 IU;?
     Dates: end: 20220122
  5. PREDNISOLONE [Suspect]
     Active Substance: PREDNISOLONE
     Dates: end: 20220210
  6. VINCRISTINE SULFATE [Suspect]
     Active Substance: VINCRISTINE SULFATE
     Dates: end: 20220202

REACTIONS (23)
  - Presyncope [None]
  - Presyncope [None]
  - Hypophagia [None]
  - Nausea [None]
  - Fatigue [None]
  - Heart rate increased [None]
  - Hepatitis acute [None]
  - Hepatotoxicity [None]
  - Haemoglobin decreased [None]
  - White blood cell count decreased [None]
  - Platelet count decreased [None]
  - Oedema peripheral [None]
  - Pyrexia [None]
  - Chills [None]
  - Hypotension [None]
  - Blood culture positive [None]
  - Bacterial infection [None]
  - Escherichia test positive [None]
  - Acute kidney injury [None]
  - Disseminated intravascular coagulation [None]
  - Multiple organ dysfunction syndrome [None]
  - Sepsis [None]
  - Pathogen resistance [None]

NARRATIVE: CASE EVENT DATE: 20220210
